FAERS Safety Report 5690258-3 (Version None)
Quarter: 2008Q2

REPORT INFORMATION
  Report Type: 
  Country: None (occurrence: None)
  Receive Date: 20080401
  Receipt Date: 20080327
  Transmission Date: 20081010
  Serious: Yes (Other)
  Sender: FDA-Public Use
  Company Number: US-ASTRAZENECA-2007UW27081

PATIENT
  Age: 68 Year
  Sex: Female
  Weight: 50.8 kg

DRUGS (5)
  1. NEXIUM [Suspect]
     Indication: GASTROOESOPHAGEAL REFLUX DISEASE
     Route: 048
     Dates: start: 20080115, end: 20080101
  2. NEXIUM [Suspect]
     Route: 048
     Dates: start: 20080101, end: 20080217
  3. LEVOXYL [Concomitant]
  4. VICODIN [Concomitant]
  5. SENOKOT [Concomitant]

REACTIONS (4)
  - ABDOMINAL PAIN UPPER [None]
  - BLADDER CATHETERISATION [None]
  - DIARRHOEA [None]
  - HAEMATURIA [None]
